FAERS Safety Report 16314468 (Version 1)
Quarter: 2019Q2

REPORT INFORMATION
  Report Type: Spontaneous
  Country: US (occurrence: US)
  Receive Date: 20190409
  Receipt Date: 20190409
  Transmission Date: 20190711
  Serious: No
  Sender: FDA-Public Use
  Company Number: None

PATIENT
  Age: 75 Year
  Sex: Female

DRUGS (4)
  1. LANSOPRAZOLE. [Concomitant]
     Active Substance: LANSOPRAZOLE
  2. LISINOPRIL. [Concomitant]
     Active Substance: LISINOPRIL
  3. OFEV [Concomitant]
     Active Substance: NINTEDANIB
  4. ADCIRCA [Suspect]
     Active Substance: TADALAFIL
     Indication: PULMONARY HYPERTENSION
     Route: 048
     Dates: start: 20190304, end: 20190402

REACTIONS (5)
  - Dyspnoea [None]
  - Pain [None]
  - Chest discomfort [None]
  - Dyspnoea exertional [None]
  - Dizziness [None]

NARRATIVE: CASE EVENT DATE: 20190409
